FAERS Safety Report 8811581 (Version 1)
Quarter: 2012Q4

REPORT INFORMATION
  Report Type: 
  Country: US (occurrence: US)
  Receive Date: 20120927
  Receipt Date: 20120927
  Transmission Date: 20130627
  Serious: Yes (Other)
  Sender: FDA-Public Use
  Company Number: PHEH2012US018675

PATIENT
  Sex: Male

DRUGS (1)
  1. GILENYA [Suspect]
     Indication: MULTIPLE SCLEROSIS
     Dosage: 0.5 mg, QD
     Route: 048

REACTIONS (7)
  - Gastrointestinal disorder [Unknown]
  - Constipation [Unknown]
  - Abdominal distension [Unknown]
  - Hypoaesthesia [Unknown]
  - Staphylococcal infection [Recovered/Resolved]
  - Pain [Unknown]
  - Paraesthesia [Unknown]
